FAERS Safety Report 4679790-9 (Version None)
Quarter: 2005Q2

REPORT INFORMATION
  Report Type: 
  Country: None (occurrence: None)
  Receive Date: 20050531
  Receipt Date: 20050517
  Transmission Date: 20051028
  Serious: Yes (Life-Threatening)
  Sender: FDA-Public Use
  Company Number: 2005075714

PATIENT
  Age: 63 Year
  Sex: Male

DRUGS (4)
  1. IRINOTECAN HCL [Suspect]
     Indication: COLORECTAL CANCER
     Dosage: 180 MG/INTERMITTENT, -INTRAVENOUS
     Route: 042
     Dates: start: 20041201, end: 20050101
  2. FLUOROURACIL [Concomitant]
  3. LEUCOVORIN CALCIUM [Concomitant]
  4. ... [Suspect]

REACTIONS (1)
  - INTERSTITIAL LUNG DISEASE [None]
